FAERS Safety Report 12233436 (Version 1)
Quarter: 2016Q2

REPORT INFORMATION
  Report Type: Spontaneous
  Country: US (occurrence: None)
  Receive Date: 20160401
  Receipt Date: 20160401
  Transmission Date: 20160815
  Serious: No
  Sender: FDA-Public Use
  Company Number: None

PATIENT
  Age: 68 Year
  Sex: Male
  Weight: 113.4 kg

DRUGS (12)
  1. TESTOSTERONE. [Suspect]
     Active Substance: TESTOSTERONE
     Indication: OSTEOPENIA
     Dosage: APPLIED TO A SURFACEM USUALLY THE SKIN
     Dates: start: 20160209, end: 20160331
  2. LIPITOR [Concomitant]
     Active Substance: ATORVASTATIN CALCIUM
  3. MOBIC [Concomitant]
     Active Substance: MELOXICAM
  4. NEXIUM [Concomitant]
     Active Substance: ESOMEPRAZOLE MAGNESIUM
  5. ZETIA [Concomitant]
     Active Substance: EZETIMIBE
  6. VITAMIN D3 [Concomitant]
     Active Substance: CHOLECALCIFEROL
  7. CALCIUM [Concomitant]
     Active Substance: CALCIUM
  8. TESTOSTERONE. [Suspect]
     Active Substance: TESTOSTERONE
     Indication: BLOOD TESTOSTERONE DECREASED
     Dosage: APPLIED TO A SURFACEM USUALLY THE SKIN
     Dates: start: 20160209, end: 20160331
  9. FISH OIL [Concomitant]
     Active Substance: FISH OIL
  10. VITAMIN [Concomitant]
     Active Substance: VITAMINS
  11. ALLEGRA [Concomitant]
     Active Substance: FEXOFENADINE HYDROCHLORIDE
  12. MAGNESIUM [Concomitant]
     Active Substance: MAGNESIUM

REACTIONS (2)
  - Product formulation issue [None]
  - Blood testosterone decreased [None]

NARRATIVE: CASE EVENT DATE: 20160313
